FAERS Safety Report 10398464 (Version 1)
Quarter: 2014Q3

REPORT INFORMATION
  Report Type: Spontaneous
  Country: US (occurrence: US)
  Receive Date: 20140821
  Receipt Date: 20140821
  Transmission Date: 20150326
  Serious: No
  Sender: FDA-Public Use
  Company Number: US-ZOGENIX, INC.-2014ZX000124

PATIENT
  Age: 59 Year
  Sex: Male
  Weight: 104.42 kg

DRUGS (4)
  1. ZOHYDRO [Suspect]
     Active Substance: HYDROCODONE BITARTRATE
     Route: 048
     Dates: start: 20140429
  2. PERCOCET [Concomitant]
     Active Substance: ACETAMINOPHEN\OXYCODONE HYDROCHLORIDE
     Dosage: 10MG/325MG
     Route: 048
     Dates: start: 20140426, end: 20140428
  3. PERCOCET [Concomitant]
     Active Substance: ACETAMINOPHEN\OXYCODONE HYDROCHLORIDE
     Indication: MUSCULOSKELETAL PAIN
     Dosage: 10MG/325MG
     Route: 048
     Dates: end: 20140415
  4. ZOHYDRO [Suspect]
     Active Substance: HYDROCODONE BITARTRATE
     Indication: MUSCULOSKELETAL PAIN
     Route: 048
     Dates: start: 20140416, end: 20140425

REACTIONS (2)
  - Breakthrough pain [Not Recovered/Not Resolved]
  - Joint injury [Not Recovered/Not Resolved]

NARRATIVE: CASE EVENT DATE: 20140416
